FAERS Safety Report 5699797-2 (Version None)
Quarter: 2008Q2

REPORT INFORMATION
  Report Type: 
  Country: None (occurrence: None)
  Receive Date: 20080410
  Receipt Date: 20080410
  Transmission Date: 20081010
  Serious: Yes (Life-Threatening, Hospitalization, Disabling)
  Sender: FDA-Public Use
  Company Number: None

PATIENT
  Age: 70 Year
  Sex: Female
  Weight: 97.0698 kg

DRUGS (2)
  1. HEPARIN [Suspect]
     Indication: KNEE ARTHROPLASTY
     Dates: start: 20070917, end: 20071008
  2. HEPARIN [Suspect]
     Indication: KNEE ARTHROPLASTY
     Dates: end: 20071014

REACTIONS (3)
  - ARTHRITIS FUNGAL [None]
  - HEPARIN-INDUCED THROMBOCYTOPENIA [None]
  - PULMONARY THROMBOSIS [None]
